FAERS Safety Report 9098483 (Version 1)
Quarter: 2013Q1

REPORT INFORMATION
  Report Type: Spontaneous
  Country: US (occurrence: US)
  Receive Date: 20130213
  Receipt Date: 20130213
  Transmission Date: 20140127
  Serious: No
  Sender: FDA-Public Use
  Company Number: US-TEVA-385713USA

PATIENT
  Age: 46 Year
  Sex: Female

DRUGS (1)
  1. COPAXONE [Suspect]
     Indication: MULTIPLE SCLEROSIS
     Dates: start: 20130201

REACTIONS (5)
  - Chest pain [Unknown]
  - Palpitations [Unknown]
  - Anxiety [Fatal]
  - Irritability [Unknown]
  - Personality change [Unknown]
